FAERS Safety Report 16248208 (Version 1)
Quarter: 2019Q2

REPORT INFORMATION
  Report Type: Spontaneous
  Country: US (occurrence: US)
  Receive Date: 20190428
  Receipt Date: 20190428
  Transmission Date: 20190711
  Serious: No
  Sender: FDA-Public Use
  Company Number: US-SENTYNL THERAPEUTICS, INC.  -2066350

PATIENT
  Age: 48 Year
  Sex: Female

DRUGS (4)
  1. BACLOFEN. [Concomitant]
     Active Substance: BACLOFEN
  2. LINZESS [Concomitant]
     Active Substance: LINACLOTIDE
  3. LEVORPHANOL TARTRATE. [Suspect]
     Active Substance: LEVORPHANOL TARTRATE
     Indication: PAIN
     Route: 048
     Dates: start: 20180421
  4. VALIUM [Concomitant]
     Active Substance: DIAZEPAM

REACTIONS (1)
  - Oedema peripheral [Not Recovered/Not Resolved]
